FAERS Safety Report 6696879-3 (Version None)
Quarter: 2010Q2

REPORT INFORMATION
  Report Type: 
  Country: None (occurrence: None)
  Receive Date: 20100420
  Receipt Date: 20090824
  Transmission Date: 20101027
  Serious: Yes (Hospitalization)
  Sender: FDA-Public Use
  Company Number: SPV1-2009-01716

PATIENT
  Age: 61 Year
  Sex: Male
  Weight: 90.7 kg

DRUGS (6)
  1. LIALDA [Suspect]
     Indication: CROHN'S DISEASE
     Dosage: 3.6 G DAILY, ORAL, 1.2 G, 3X/DAY:TID, ORAL
     Route: 048
     Dates: start: 20071101, end: 20071201
  2. LIALDA [Suspect]
     Indication: CROHN'S DISEASE
     Dosage: 3.6 G DAILY, ORAL, 1.2 G, 3X/DAY:TID, ORAL
     Route: 048
     Dates: start: 20090801
  3. ASACOL [Suspect]
     Indication: DIARRHOEA
     Dates: start: 20071201
  4. REMICADE [Suspect]
     Indication: ARTHRITIS
     Dates: start: 20071201
  5. PAROXETINE HCL [Concomitant]
  6. CELEBREX [Concomitant]

REACTIONS (4)
  - DRUG INEFFECTIVE FOR UNAPPROVED INDICATION [None]
  - MEDICATION RESIDUE [None]
  - OFF LABEL USE [None]
  - PANCREATITIS [None]
